FAERS Safety Report 12705956 (Version 1)
Quarter: 2016Q3

REPORT INFORMATION
  Report Type: Spontaneous
  Country: None (occurrence: None)
  Receive Date: 20160831
  Receipt Date: 20160831
  Transmission Date: 20161109
  Serious: Yes (Hospitalization)
  Sender: FDA-Public Use
  Company Number: None

PATIENT
  Age: 84 Year
  Sex: Male

DRUGS (1)
  1. VORICONAZOLE. [Suspect]
     Active Substance: VORICONAZOLE
     Indication: OSTEOMYELITIS
     Route: 048

REACTIONS (2)
  - Muscular weakness [None]
  - Hallucination, visual [None]

NARRATIVE: CASE EVENT DATE: 20160814
